FAERS Safety Report 5161384-2 (Version None)
Quarter: 2006Q4

REPORT INFORMATION
  Report Type: 
  Country: None (occurrence: None)
  Receive Date: 20061121
  Receipt Date: 20061110
  Transmission Date: 20070319
  Serious: Yes (Other)
  Sender: FDA-Public Use
  Company Number: S06-UKI-04519-01

PATIENT
  Age: 55 Year
  Sex: Female

DRUGS (10)
  1. CITALOPRAM HYDROBROMIDE [Suspect]
     Indication: DEPRESSION
     Dosage: 20 MG QD PO
     Route: 048
     Dates: start: 20061001, end: 20061018
  2. QUININE SULFATE [Concomitant]
  3. LEVOTHYROXINE SODIUM [Concomitant]
  4. INSULIN [Concomitant]
  5. FUROSEMIDE [Concomitant]
  6. AMLODIPINE [Concomitant]
  7. ATENOLOL [Concomitant]
  8. ATORVASTATIN CALCIUM [Concomitant]
  9. METFORMIN [Concomitant]
  10. LISINOPRIL [Concomitant]

REACTIONS (2)
  - IDIOPATHIC THROMBOCYTOPENIC PURPURA [None]
  - MEGAKARYOCYTES INCREASED [None]
